FAERS Safety Report 10435560 (Version 1)
Quarter: 2014Q3

REPORT INFORMATION
  Report Type: Spontaneous
  Country: US (occurrence: US)
  Receive Date: 20140908
  Receipt Date: 20140908
  Transmission Date: 20150326
  Serious: No
  Sender: FDA-Public Use
  Company Number: US-BIOGENIDEC-2014BI089743

PATIENT
  Age: 73 Year
  Sex: Male

DRUGS (1)
  1. TECFIDERA [Suspect]
     Active Substance: DIMETHYL FUMARATE
     Indication: MULTIPLE SCLEROSIS
     Route: 048
     Dates: start: 20140626, end: 20140730

REACTIONS (4)
  - Dizziness [Recovered/Resolved]
  - Fall [Recovered/Resolved]
  - Anger [Unknown]
  - Joint dislocation [Recovered/Resolved]

NARRATIVE: CASE EVENT DATE: 2014
